FAERS Safety Report 6567443-1 (Version None)
Quarter: 2010Q1

REPORT INFORMATION
  Report Type: 
  Country: None (occurrence: None)
  Receive Date: 20100202
  Receipt Date: 20100128
  Transmission Date: 20100710
  Serious: Yes (Hospitalization)
  Sender: FDA-Public Use
  Company Number: FR-ABBOTT-10P-056-0618709-00

PATIENT
  Sex: Female

DRUGS (5)
  1. HUMIRA [Suspect]
     Indication: CROHN'S DISEASE
     Dosage: 1ST INJECTION
     Dates: start: 20090811, end: 20090811
  2. HUMIRA [Suspect]
     Dosage: 2ND INJECTION
     Dates: start: 20090825, end: 20090825
  3. HUMIRA [Suspect]
     Dosage: 3RD INJECTION
     Dates: start: 20090908, end: 20090908
  4. HUMIRA [Suspect]
     Dates: end: 20091016
  5. HUMIRA [Suspect]
     Dates: start: 20091016, end: 20091106

REACTIONS (3)
  - ACUTE GENERALISED EXANTHEMATOUS PUSTULOSIS [None]
  - DIARRHOEA [None]
  - VARICELLA [None]
